FAERS Safety Report 6412022-X (Version None)
Quarter: 2009Q4

REPORT INFORMATION
  Report Type: 
  Country: None (occurrence: None)
  Receive Date: 20091023
  Receipt Date: 20091012
  Transmission Date: 20100525
  Serious: Yes (Other)
  Sender: FDA-Public Use
  Company Number: US-PFIZER INC-2009284442

PATIENT
  Sex: Female
  Weight: 58.957 kg

DRUGS (3)
  1. ZOLOFT [Suspect]
     Indication: ANXIETY
     Dosage: 25 MG, UNK
     Dates: start: 20040101
  2. ZOLOFT [Suspect]
     Indication: DEPRESSION
     Dosage: 50 MG, UNK
  3. ADVIL [Concomitant]
     Indication: DYSMENORRHOEA
     Dosage: UNK

REACTIONS (8)
  - ANGER [None]
  - DRUG DOSE OMISSION [None]
  - DRUG INEFFECTIVE [None]
  - FATIGUE [None]
  - MIDDLE INSOMNIA [None]
  - NIGHTMARE [None]
  - PANIC ATTACK [None]
  - PERSONALITY CHANGE [None]
